FAERS Safety Report 4887926-X (Version None)
Quarter: 2006Q1

REPORT INFORMATION
  Report Type: 
  Country: None (occurrence: None)
  Receive Date: 20060123
  Receipt Date: 20050929
  Transmission Date: 20060701
  Serious: Yes (Hospitalization)
  Sender: FDA-Public Use
  Company Number: US-MERCK-0510USA00331

PATIENT
  Age: 73 Year
  Sex: Female
  Weight: 68 kg

DRUGS (10)
  1. VIOXX [Suspect]
     Indication: BACK PAIN
     Route: 048
     Dates: start: 20010101, end: 20040901
  2. VIOXX [Suspect]
     Route: 048
     Dates: start: 20010101, end: 20040901
  3. VIOXX [Suspect]
     Indication: ARTHRALGIA
     Route: 048
     Dates: start: 20010101, end: 20040901
  4. VIOXX [Suspect]
     Route: 048
     Dates: start: 20010101, end: 20040901
  5. MAXZIDE [Concomitant]
     Route: 065
  6. ISOPTIN [Concomitant]
     Route: 048
  7. VICODIN [Concomitant]
     Indication: BACK PAIN
     Route: 065
  8. FLEXERIL [Concomitant]
     Route: 065
  9. ALLOPURINOL [Concomitant]
     Indication: GOUT
     Route: 065
  10. ACCUPRIL [Concomitant]
     Route: 048

REACTIONS (13)
  - ACUTE MYOCARDIAL INFARCTION [None]
  - ANGINA PECTORIS [None]
  - ANGINA UNSTABLE [None]
  - BACK PAIN [None]
  - CEREBROVASCULAR ACCIDENT [None]
  - CORONARY ARTERY DISEASE [None]
  - INFECTION [None]
  - INSOMNIA [None]
  - ISCHAEMIA [None]
  - PNEUMONIA [None]
  - SINUS TACHYCARDIA [None]
  - THROMBOPHLEBITIS [None]
  - THROMBOSIS [None]
